FAERS Safety Report 4700529-2 (Version None)
Quarter: 2005Q2

REPORT INFORMATION
  Report Type: 
  Country: None (occurrence: None)
  Receive Date: 20050627
  Receipt Date: 20050627
  Transmission Date: 20051028
  Serious: Yes (Death)
  Sender: FDA-Public Use
  Company Number: None

PATIENT
  Age: 32 Year
  Sex: Male
  Weight: 88.4514 kg

DRUGS (8)
  1. PHENERGAN HYDROCHLORIDE TAB [Suspect]
     Indication: ALCOHOL WITHDRAWAL SYNDROME
     Dosage: 25 MG  1X   INTRAVENOU
     Route: 042
     Dates: start: 20050422, end: 20050422
  2. PHENERGAN HYDROCHLORIDE TAB [Suspect]
     Indication: NAUSEA
     Dosage: 25 MG  1X   INTRAVENOU
     Route: 042
     Dates: start: 20050422, end: 20050422
  3. ANZEMET [Suspect]
     Indication: ALCOHOL WITHDRAWAL SYNDROME
     Dosage: 12.5      1X    INTRAVENOU
     Route: 042
     Dates: start: 20050422, end: 20050422
  4. ANZEMET [Suspect]
     Indication: NAUSEA
     Dosage: 12.5      1X    INTRAVENOU
     Route: 042
     Dates: start: 20050422, end: 20050422
  5. LITHIUM [Concomitant]
  6. NALTREXONE [Concomitant]
  7. AVALIDE [Concomitant]
  8. WELLBUTRIN [Concomitant]

REACTIONS (6)
  - CARDIO-RESPIRATORY ARREST [None]
  - LOSS OF CONSCIOUSNESS [None]
  - NAUSEA [None]
  - RETCHING [None]
  - SKIN DISCOLOURATION [None]
  - VENTRICULAR FIBRILLATION [None]
